FAERS Safety Report 21424111 (Version 1)
Quarter: 2022Q4

REPORT INFORMATION
  Report Type: Spontaneous
  Country: US (occurrence: None)
  Receive Date: 20221007
  Receipt Date: 20221007
  Transmission Date: 20230112
  Serious: Yes (Death, Life-Threatening, Hospitalization, Disabling)
  Sender: FDA-Public Use
  Company Number: None

PATIENT
  Age: 6 Month
  Sex: Male
  Weight: 68.04 kg

DRUGS (1)
  1. ENTYVIO [Suspect]
     Active Substance: VEDOLIZUMAB

REACTIONS (4)
  - Immobile [None]
  - Progressive multifocal leukoencephalopathy [None]
  - JC virus infection [None]
  - Impaired reasoning [None]

NARRATIVE: CASE EVENT DATE: 20210131
